FAERS Safety Report 7502573-9 (Version None)
Quarter: 2011Q1

REPORT INFORMATION
  Report Type: 
  Country: None (occurrence: None)
  Receive Date: 20110318
  Receipt Date: 20101216
  Transmission Date: 20110831
  Serious: Yes (Hospitalization)
  Sender: FDA-Public Use
  Company Number: 2010SP065073

PATIENT
  Age: 57 Year
  Sex: Female

DRUGS (5)
  1. SYNTHROID [Concomitant]
  2. KLONOPIN [Concomitant]
  3. PEG-INTRON [Suspect]
     Indication: HEPATITIS C
     Dosage: 120 MCG;QW
     Dates: start: 20100607
  4. BENTYL [Concomitant]
  5. ZOLOFT [Concomitant]

REACTIONS (2)
  - HYPERTENSION [None]
  - ALOPECIA [None]
